FAERS Safety Report 12210228 (Version 3)
Quarter: 2017Q3

REPORT INFORMATION
  Report Type: Report from Study
  Country: None (occurrence: CA)
  Receive Date: 20160325
  Receipt Date: 20170701
  Transmission Date: 20171127
  Serious: Yes (Other)
  Sender: FDA-Public Use
  Company Number: CA-ABBVIE-16K-028-1587064-00

PATIENT
  Age: 49 Year
  Sex: Male
  Weight: 98.97 kg

DRUGS (10)
  1. CIPRALEX [Concomitant]
     Active Substance: ESCITALOPRAM OXALATE
     Indication: PRODUCT USED FOR UNKNOWN INDICATION
  2. CANDESARTAN HCTZ [Concomitant]
     Active Substance: CANDESARTAN CILEXETIL\HYDROCHLOROTHIAZIDE
     Indication: PRODUCT USED FOR UNKNOWN INDICATION
     Dosage: 16 / 12.5
     Dates: start: 20151204
  3. HUMIRA [Suspect]
     Active Substance: ADALIMUMAB
     Indication: PSORIASIS
     Route: 058
     Dates: start: 20120620, end: 20160307
  4. LYDERM [Concomitant]
     Indication: PRODUCT USED FOR UNKNOWN INDICATION
     Route: 061
     Dates: start: 20150906
  5. CEPHALEXIN. [Concomitant]
     Active Substance: CEPHALEXIN
     Indication: PRODUCT USED FOR UNKNOWN INDICATION
     Dates: start: 20160322
  6. ATORVASTATIN [Concomitant]
     Active Substance: ATORVASTATIN
     Indication: PRODUCT USED FOR UNKNOWN INDICATION
     Dosage: AT BEDTIME
     Dates: start: 20160123
  7. HUMIRA [Suspect]
     Active Substance: ADALIMUMAB
     Route: 058
     Dates: start: 201606
  8. LIPITOR [Concomitant]
     Active Substance: ATORVASTATIN CALCIUM
     Indication: PRODUCT USED FOR UNKNOWN INDICATION
  9. ZOPICLONE [Concomitant]
     Active Substance: ZOPICLONE
     Indication: PRODUCT USED FOR UNKNOWN INDICATION
     Dosage: AT BEDTIME WHEN NEEDED
     Dates: start: 20150811
  10. AMITRIPTYLINE [Concomitant]
     Active Substance: AMITRIPTYLINE
     Indication: PRODUCT USED FOR UNKNOWN INDICATION
     Dosage: AT BETIME

REACTIONS (18)
  - Loss of consciousness [Recovered/Resolved]
  - Blood cholesterol increased [Unknown]
  - Electrocardiogram T wave abnormal [Unknown]
  - Non-high-density lipoprotein cholesterol increased [Unknown]
  - Presyncope [Unknown]
  - Dizziness [Not Recovered/Not Resolved]
  - Atrioventricular block second degree [Unknown]
  - Hypoacusis [Recovered/Resolved]
  - Visual impairment [Recovered/Resolved]
  - Extrasystoles [Unknown]
  - Alanine aminotransferase increased [Unknown]
  - Blood pressure increased [Unknown]
  - Asthenia [Not Recovered/Not Resolved]
  - Syncope [Not Recovered/Not Resolved]
  - Low density lipoprotein increased [Unknown]
  - Alanine aminotransferase increased [Unknown]
  - Blood triglycerides increased [Unknown]
  - Loss of consciousness [Recovered/Resolved]

NARRATIVE: CASE EVENT DATE: 2012
